FAERS Safety Report 6819407-8 (Version None)
Quarter: 2010Q3

REPORT INFORMATION
  Report Type: 
  Country: None (occurrence: None)
  Receive Date: 20100707
  Receipt Date: 20100625
  Transmission Date: 20110219
  Serious: Yes (Death)
  Sender: FDA-Public Use
  Company Number: JP-PFIZER INC-2010079764

PATIENT
  Age: 74 Year
  Sex: Female

DRUGS (5)
  1. HALCION [Suspect]
     Indication: INSOMNIA
     Dosage: UNK
     Route: 048
     Dates: start: 20100428, end: 20100623
  2. NORVASC [Concomitant]
     Indication: HYPERTENSION
     Dosage: UNK
     Route: 048
     Dates: start: 20100428, end: 20100623
  3. ASPIRIN [Concomitant]
     Indication: MYOCARDIAL INFARCTION
     Dosage: UNK
     Route: 048
     Dates: start: 20100428, end: 20100623
  4. THEO-DUR [Concomitant]
     Indication: ASTHMA
     Dosage: UNK
     Route: 048
     Dates: start: 20100428, end: 20100623
  5. NOVOLIN R [Concomitant]
     Indication: DIABETES MELLITUS
     Dosage: UNK
     Route: 042

REACTIONS (1)
  - DEATH [None]
